FAERS Safety Report 17065566 (Version 2)
Quarter: 2019Q4

REPORT INFORMATION
  Report Type: Spontaneous
  Country: JP (occurrence: JP)
  Receive Date: 20191122
  Receipt Date: 20191210
  Transmission Date: 20200122
  Serious: Yes (Death, Other)
  Sender: FDA-Public Use
  Company Number: JP-OTSUKA-2019_038129

PATIENT
  Age: 11 Decade

DRUGS (1)
  1. SAMSCA [Suspect]
     Active Substance: TOLVAPTAN
     Indication: CARDIAC FAILURE
     Dosage: UNK
     Route: 065

REACTIONS (3)
  - Congestive cardiomyopathy [Unknown]
  - Hepatic function abnormal [Unknown]
  - Cardiac failure [Fatal]

NARRATIVE: CASE EVENT DATE: 20191108
